FAERS Safety Report 24247125 (Version 1)
Quarter: 2024Q3

REPORT INFORMATION
  Report Type: Spontaneous
  Country: IN (occurrence: IN)
  Receive Date: 20240826
  Receipt Date: 20240826
  Transmission Date: 20241017
  Serious: Yes (Life-Threatening, Hospitalization)
  Sender: JUBILANT
  Company Number: None

PATIENT
  Age: 36 Year
  Sex: Male

DRUGS (3)
  1. RISPERIDONE [Suspect]
     Active Substance: RISPERIDONE
     Indication: Delusional disorder, unspecified type
     Dosage: 3 MG, ONCE PER DAY (STOPPED MEDICATION FIVE DAYS BEFORE ADMISSION RESUMED NIGHT BEFORE PRESENTING TO
     Route: 048
  2. CLOZAPINE [Suspect]
     Active Substance: CLOZAPINE
     Indication: Delusional disorder, unspecified type
     Dosage: 50 MG, ONCE PER DAY (STOPPED MEDICATION FIVE DAYS BEFORE ADMISSION RESUMED NIGHT BEFORE PRESENTING T
     Route: 048
  3. AMITRIPTYLINE [Concomitant]
     Active Substance: AMITRIPTYLINE
     Indication: Delusional disorder, unspecified type
     Dosage: 10 MG, ONCE PER DAY (STOPPED MEDICATION FIVE DAYS BEFORE ADMISSION RESUMED NIGHT BEFORE PRESENTING T
     Route: 048

REACTIONS (6)
  - Acute kidney injury [Recovering/Resolving]
  - Ileus paralytic [Recovering/Resolving]
  - Intestinal pseudo-obstruction [Recovered/Resolved]
  - Rhabdomyolysis [Recovering/Resolving]
  - Rales [Recovering/Resolving]
  - Neuroleptic malignant syndrome [Recovering/Resolving]
